FAERS Safety Report 11175859 (Version 1)
Quarter: 2015Q2

REPORT INFORMATION
  Report Type: Report from Study
  Country: JP (occurrence: JP)
  Receive Date: 20150609
  Receipt Date: 20150609
  Transmission Date: 20150821
  Serious: Yes (Death, Hospitalization, Other)
  Sender: FDA-Public Use
  Company Number: JP-ASTRAZENECA-2015SE55715

PATIENT
  Age: 74 Year
  Sex: Female

DRUGS (19)
  1. HABEKACIN /01069402/ [Suspect]
     Active Substance: ARBEKACIN SULFATE
     Indication: LUNG INFECTION
     Route: 065
     Dates: start: 20140806
  2. LIPITOR [Concomitant]
     Active Substance: ATORVASTATIN CALCIUM
  3. PAZUFLOXACIN MESILATE [Suspect]
     Active Substance: PAZUFLOXACIN MESILATE
     Route: 065
     Dates: start: 20140714
  4. RIMATIL [Concomitant]
     Active Substance: BUCILLAMINE
     Dates: start: 20100218
  5. ZOSYN [Suspect]
     Active Substance: PIPERACILLIN SODIUM\TAZOBACTAM SODIUM
     Indication: LUNG INFECTION
     Route: 065
     Dates: start: 20140710
  6. TACROLIMUS. [Suspect]
     Active Substance: TACROLIMUS
     Indication: RHEUMATOID ARTHRITIS
     Route: 048
     Dates: start: 20130718, end: 201406
  7. AMPICILLIN SODIUM W/SULBACTAM SODIUM [Suspect]
     Active Substance: AMPICILLIN SODIUM\SULBACTAM SODIUM
     Route: 065
     Dates: start: 20140722
  8. ZOSYN [Suspect]
     Active Substance: PIPERACILLIN SODIUM\TAZOBACTAM SODIUM
     Indication: LUNG INFECTION
     Route: 065
     Dates: start: 20140806
  9. SOLETON [Concomitant]
     Active Substance: ZALTOPROFEN
  10. LEUKOVORIN [Concomitant]
     Active Substance: LEUCOVORIN SODIUM
     Dates: end: 20140709
  11. SULFASALAZINE. [Concomitant]
     Active Substance: SULFASALAZINE
     Dates: start: 200610, end: 20140528
  12. AMBISOME [Suspect]
     Active Substance: AMPHOTERICIN B
     Indication: SYSTEMIC CANDIDA
     Route: 065
     Dates: start: 20140806
  13. ALBUMIN (HUMAN). [Concomitant]
     Active Substance: ALBUMIN (HUMAN)
     Dates: start: 20140901
  14. MEROPENEM. [Suspect]
     Active Substance: MEROPENEM
     Route: 042
     Dates: start: 20140719
  15. TACROLIMUS. [Suspect]
     Active Substance: TACROLIMUS
     Indication: RHEUMATOID ARTHRITIS
     Route: 048
     Dates: start: 20140625
  16. ULCERMIN [Concomitant]
     Active Substance: SUCRALFATE
  17. MICAFUNGIN [Concomitant]
     Active Substance: MICAFUNGIN
     Dates: start: 20140803, end: 20140805
  18. TOCILIZUMAB [Suspect]
     Active Substance: TOCILIZUMAB
     Indication: RHEUMATOID ARTHRITIS
     Route: 058
     Dates: start: 20140401, end: 20140626
  19. RHEUMATREX [Suspect]
     Active Substance: METHOTREXATE SODIUM
     Indication: RHEUMATOID ARTHRITIS
     Route: 048
     Dates: start: 20140214, end: 20140709

REACTIONS (14)
  - Lung infection [Unknown]
  - Haematocrit decreased [None]
  - Pulmonary oedema [Fatal]
  - Acute respiratory distress syndrome [None]
  - Haemoglobin decreased [None]
  - Acute respiratory distress syndrome [Fatal]
  - Systemic candida [Unknown]
  - Pneumonia pneumococcal [None]
  - Red blood cell count decreased [None]
  - Therapy cessation [Unknown]
  - Staphylococcal infection [Unknown]
  - Multi-organ failure [Fatal]
  - Nutritional condition abnormal [Unknown]
  - Renal impairment [Unknown]

NARRATIVE: CASE EVENT DATE: 2014
